FAERS Safety Report 5425684-0 (Version None)
Quarter: 2007Q3

REPORT INFORMATION
  Report Type: 
  Country: None (occurrence: None)
  Receive Date: 20070824
  Receipt Date: 20070813
  Transmission Date: 20080115
  Serious: Yes (Hospitalization, Other)
  Sender: FDA-Public Use
  Company Number: SE-PFIZER INC-2007068228

PATIENT
  Sex: Female

DRUGS (4)
  1. ATARAX [Suspect]
     Dosage: TEXT:10 DF
     Route: 048
     Dates: start: 20070609, end: 20070609
  2. SOBRIL [Suspect]
     Route: 048
     Dates: start: 20070609, end: 20070609
  3. SERTRALINE [Suspect]
     Route: 048
     Dates: start: 20070609, end: 20070609
  4. IMOVANE [Suspect]
     Route: 048
     Dates: start: 20070609, end: 20070609

REACTIONS (1)
  - MULTIPLE DRUG OVERDOSE [None]
